FAERS Safety Report 8280406-3 (Version None)
Quarter: 2012Q2

REPORT INFORMATION
  Report Type: 
  Country: None (occurrence: None)
  Receive Date: 20120412
  Receipt Date: 20110729
  Transmission Date: 20120825
  Serious: No
  Sender: FDA-Public Use
  Company Number: US-ASTRAZENECA-2011SE45670

PATIENT
  Sex: Male

DRUGS (6)
  1. NEXIUM [Suspect]
     Indication: HIATUS HERNIA
     Route: 048
     Dates: start: 20000101, end: 20060101
  2. NEXIUM [Suspect]
     Route: 048
     Dates: start: 20070101, end: 20110101
  3. NEXIUM [Suspect]
     Route: 048
     Dates: start: 20070101, end: 20110101
  4. NEXIUM [Suspect]
     Indication: GASTROOESOPHAGEAL REFLUX DISEASE
     Route: 048
     Dates: start: 20000101, end: 20060101
  5. CALCIUM CARBONATE [Concomitant]
  6. ROLAIDS [Concomitant]

REACTIONS (4)
  - INTENTIONAL DRUG MISUSE [None]
  - DRUG DOSE OMISSION [None]
  - GASTROOESOPHAGEAL REFLUX DISEASE [None]
  - INSOMNIA [None]
